FAERS Safety Report 7371675-2 (Version None)
Quarter: 2011Q1

REPORT INFORMATION
  Report Type: 
  Country: None (occurrence: None)
  Receive Date: 20110316
  Receipt Date: 20110306
  Transmission Date: 20110831
  Serious: Yes (Other)
  Sender: FDA-Public Use
  Company Number: 1000019169

PATIENT
  Age: 66 Year
  Sex: Male

DRUGS (1)
  1. ROFLUMILAST (ROFLUMILAST) (TABLETS) [Suspect]

REACTIONS (2)
  - DYSPNOEA [None]
  - TREMOR [None]
